FAERS Safety Report 6694491-3 (Version None)
Quarter: 2010Q2

REPORT INFORMATION
  Report Type: 
  Country: None (occurrence: None)
  Receive Date: 20100423
  Receipt Date: 20100412
  Transmission Date: 20101027
  Serious: Yes (Other)
  Sender: FDA-Public Use
  Company Number: US-PFIZER INC-2010046661

PATIENT
  Sex: Male
  Weight: 119.27 kg

DRUGS (2)
  1. LYRICA [Suspect]
     Indication: NEUROPATHY PERIPHERAL
     Dosage: 75 MG, 2X/DAY
     Route: 048
     Dates: start: 20091001, end: 20100201
  2. LYRICA [Suspect]
     Indication: FIBROMYALGIA

REACTIONS (7)
  - DYSPNOEA [None]
  - HEART RATE IRREGULAR [None]
  - MENTAL IMPAIRMENT [None]
  - SLEEP APNOEA SYNDROME [None]
  - SLEEP DISORDER [None]
  - WEIGHT INCREASED [None]
  - WITHDRAWAL SYNDROME [None]
